FAERS Safety Report 13070638 (Version 2)
Quarter: 2017Q1

REPORT INFORMATION
  Report Type: Spontaneous
  Country: FR (occurrence: FR)
  Receive Date: 20161229
  Receipt Date: 20170117
  Transmission Date: 20170428
  Serious: Yes (Hospitalization)
  Sender: FDA-Public Use
  Company Number: FR-ROCHE-1872404

PATIENT
  Age: 54 Year
  Sex: Female

DRUGS (10)
  1. NIVESTIM [Suspect]
     Active Substance: FILGRASTIM
     Indication: PRODUCT USED FOR UNKNOWN INDICATION
     Route: 065
  2. DEBRIDAT [Concomitant]
     Active Substance: TRIMEBUTINE MALEATE
  3. LEXOMIL [Concomitant]
     Active Substance: BROMAZEPAM
  4. INNOHEP [Concomitant]
     Active Substance: TINZAPARIN SODIUM
  5. ESOMEPRAZOLE [Concomitant]
     Active Substance: ESOMEPRAZOLE
  6. COVERSYL [Concomitant]
     Active Substance: PERINDOPRIL
  7. HERCEPTIN [Suspect]
     Active Substance: TRASTUZUMAB
     Indication: BREAST CANCER
     Dosage: 1 CYCLE
     Route: 065
     Dates: start: 20161102
  8. CARDENSIEL [Concomitant]
     Active Substance: BISOPROLOL FUMARATE
  9. NAVELBINE [Suspect]
     Active Substance: VINORELBINE TARTRATE
     Indication: BREAST CANCER
     Dosage: 1 CYCLE
     Route: 065
     Dates: start: 20161122
  10. PROCORALAN [Concomitant]
     Active Substance: IVABRADINE

REACTIONS (2)
  - Ileus [Recovering/Resolving]
  - Off label use [Unknown]
